FAERS Safety Report 24659262 (Version 1)
Quarter: 2024Q4

REPORT INFORMATION
  Report Type: Spontaneous
  Country: US (occurrence: None)
  Receive Date: 20241123
  Receipt Date: 20241123
  Transmission Date: 20250115
  Serious: Yes (Other)
  Sender: Public
  Company Number: None

PATIENT
  Age: 33 Year
  Sex: Female
  Weight: 81 kg

DRUGS (1)
  1. BUPRENORPHINE [Suspect]
     Active Substance: BUPRENORPHINE
     Dosage: OTHER STRENGTH : UNIT;?
     Route: 058
     Dates: start: 20241111

REACTIONS (5)
  - Hypoaesthesia [None]
  - Migraine [None]
  - Crying [None]
  - Infant irritability [None]
  - Maternal exposure during breast feeding [None]

NARRATIVE: CASE EVENT DATE: 20241113
